FAERS Safety Report 5791983-6 (Version None)
Quarter: 2008Q2

REPORT INFORMATION
  Report Type: 
  Country: None (occurrence: None)
  Receive Date: 20080625
  Receipt Date: 20080515
  Transmission Date: 20081010
  Serious: No
  Sender: FDA-Public Use
  Company Number: US-WYE-H04121108

PATIENT
  Age: 80 Year
  Sex: Male
  Weight: 81.27 kg

DRUGS (6)
  1. TORISEL [Suspect]
     Indication: RENAL CELL CARCINOMA
     Dosage: 25 MG 1X PER 1 WK, INTRAVENOUS
     Route: 042
     Dates: start: 20080501
  2. TOPRAL (SULTOPRIDE) [Concomitant]
  3. LASIX [Concomitant]
  4. LIPITOR [Concomitant]
  5. PLAVIX [Concomitant]
  6. FLOMAX (MORNIFLUMATE) [Concomitant]

REACTIONS (1)
  - PLATELET COUNT DECREASED [None]
